FAERS Safety Report 12197747 (Version 1)
Quarter: 2016Q1

REPORT INFORMATION
  Report Type: Spontaneous
  Country: US (occurrence: None)
  Receive Date: 20160321
  Receipt Date: 20160321
  Transmission Date: 20160526
  Serious: Yes (Death)
  Sender: FDA-Public Use
  Company Number: None

PATIENT
  Age: 59 Year
  Sex: Male

DRUGS (1)
  1. REVLIMID [Suspect]
     Active Substance: LENALIDOMIDE
     Indication: NON-HODGKIN^S LYMPHOMA
     Route: 048
     Dates: start: 20160225, end: 20160312

REACTIONS (5)
  - Disease progression [None]
  - Bone marrow transplant [None]
  - B-cell lymphoma recurrent [None]
  - Renal failure [None]
  - Hospice care [None]

NARRATIVE: CASE EVENT DATE: 20160312
